FAERS Safety Report 9511929 (Version 1)
Quarter: 2013Q3

REPORT INFORMATION
  Report Type: Spontaneous
  Country: US (occurrence: US)
  Receive Date: 20130910
  Receipt Date: 20130910
  Transmission Date: 20140515
  Serious: No
  Sender: FDA-Public Use
  Company Number: US-JNJFOC-20130903820

PATIENT
  Age: 39 Year
  Sex: Female

DRUGS (7)
  1. INVEGA SUSTENNA [Suspect]
     Indication: SCHIZOPHRENIA
     Route: 030
  2. INVEGA SUSTENNA [Suspect]
     Indication: SCHIZOPHRENIA
     Route: 030
  3. INVEGA SUSTENNA [Suspect]
     Indication: SCHIZOPHRENIA
     Route: 030
  4. TRAZODONE [Concomitant]
     Indication: SLEEP DISORDER THERAPY
  5. LUNESTA [Concomitant]
     Indication: SLEEP DISORDER THERAPY
  6. LITHIUM [Concomitant]
     Indication: DRUG THERAPY
  7. UNKNOWN MEDICATION [Concomitant]
     Indication: NIGHTMARE

REACTIONS (2)
  - Blood prolactin increased [Unknown]
  - Galactorrhoea [Unknown]
